FAERS Safety Report 8178350-5 (Version None)
Quarter: 2012Q1

REPORT INFORMATION
  Report Type: 
  Country: None (occurrence: None)
  Receive Date: 20120301
  Receipt Date: 20120224
  Transmission Date: 20120608
  Serious: Yes (Hospitalization)
  Sender: FDA-Public Use
  Company Number: JP-BRACCO-005630

PATIENT
  Age: 63 Year
  Sex: Male
  Weight: 76 kg

DRUGS (5)
  1. PROHANCE [Suspect]
     Indication: BRAIN CANCER METASTATIC
     Route: 042
     Dates: start: 20120207, end: 20120207
  2. NORVASC [Concomitant]
     Indication: HYPERTENSION
     Route: 048
  3. HALCION [Concomitant]
     Route: 048
  4. LOSARTAN POTASSIUM AND HYDROCHLOROTHIAZIDE [Concomitant]
     Indication: HYPERTENSION
     Route: 048
  5. PROHANCE [Suspect]
     Indication: NUCLEAR MAGNETIC RESONANCE IMAGING
     Route: 042
     Dates: start: 20120207, end: 20120207

REACTIONS (1)
  - SHOCK [None]
